FAERS Safety Report 13976631 (Version 10)
Quarter: 2020Q2

REPORT INFORMATION
  Report Type: Report from Study
  Country: BR (occurrence: BR)
  Receive Date: 20170915
  Receipt Date: 20200609
  Transmission Date: 20200713
  Serious: Yes (Disabling, Other)
  Sender: FDA-Public Use
  Company Number: PHHY2017BR116847

PATIENT
  Age: 42 Year
  Sex: Female
  Weight: 72 kg

DRUGS (8)
  1. COSENTYX [Suspect]
     Active Substance: SECUKINUMAB
     Dosage: UNK
     Route: 065
     Dates: start: 201909
  2. VIMOVO [Concomitant]
     Active Substance: ESOMEPRAZOLE MAGNESIUM\NAPROXEN
     Indication: PSORIATIC ARTHROPATHY
     Dosage: 2 DF (800MG), QD
     Route: 048
  3. COSENTYX [Suspect]
     Active Substance: SECUKINUMAB
     Indication: PSORIATIC ARTHROPATHY
     Dosage: 300 MG, QMO (EVERY 4 WEEKS), 2 AMPOU;ES ONCE A MONTH
     Route: 058
     Dates: start: 20170112, end: 20170629
  4. COSENTYX [Suspect]
     Active Substance: SECUKINUMAB
     Dosage: UNK
     Route: 065
     Dates: start: 201910
  5. COSENTYX [Suspect]
     Active Substance: SECUKINUMAB
     Indication: ANKYLOSING SPONDYLITIS
     Dosage: 300 MG, UNK
     Route: 058
     Dates: start: 20170803, end: 20171026
  6. COSENTYX [Suspect]
     Active Substance: SECUKINUMAB
     Dosage: 300 MG, UNK
     Route: 058
     Dates: start: 20171224
  7. COSENTYX [Suspect]
     Active Substance: SECUKINUMAB
     Dosage: UNK
     Route: 065
     Dates: start: 20191118
  8. COSENTYX [Suspect]
     Active Substance: SECUKINUMAB
     Dosage: 300 MG, UNKNOWN
     Route: 065
     Dates: start: 202003

REACTIONS (43)
  - Tooth infection [Recovering/Resolving]
  - Pyrexia [Recovering/Resolving]
  - Stress [Unknown]
  - Drug hypersensitivity [Unknown]
  - Coronavirus test positive [Not Recovered/Not Resolved]
  - Pharyngitis [Unknown]
  - Pelvic pain [Recovering/Resolving]
  - Tonsillitis [Recovering/Resolving]
  - Pain [Not Recovered/Not Resolved]
  - Malaise [Not Recovered/Not Resolved]
  - Skin exfoliation [Not Recovered/Not Resolved]
  - Oropharyngeal pain [Recovering/Resolving]
  - Tuberculosis [Not Recovered/Not Resolved]
  - Cough [Not Recovered/Not Resolved]
  - Arthralgia [Not Recovered/Not Resolved]
  - Gait disturbance [Not Recovered/Not Resolved]
  - Swelling face [Recovering/Resolving]
  - Asthma [Not Recovered/Not Resolved]
  - Joint swelling [Not Recovered/Not Resolved]
  - Gastrointestinal infection [Unknown]
  - Fatigue [Not Recovered/Not Resolved]
  - Pain in extremity [Recovering/Resolving]
  - Peripheral coldness [Recovering/Resolving]
  - Therapeutic response decreased [Unknown]
  - Urinary tract infection [Recovering/Resolving]
  - Peripheral vascular disorder [Recovering/Resolving]
  - Weight increased [Unknown]
  - Psoriasis [Not Recovered/Not Resolved]
  - Sacroiliitis [Not Recovered/Not Resolved]
  - Peripheral swelling [Not Recovered/Not Resolved]
  - Abdominal distension [Not Recovered/Not Resolved]
  - Neck pain [Not Recovered/Not Resolved]
  - Pneumonia viral [Not Recovered/Not Resolved]
  - Dysuria [Recovering/Resolving]
  - Psoriatic arthropathy [Not Recovered/Not Resolved]
  - Skin lesion [Not Recovered/Not Resolved]
  - Diarrhoea [Not Recovered/Not Resolved]
  - Anosmia [Not Recovered/Not Resolved]
  - Cleft palate [Not Recovered/Not Resolved]
  - Skin discolouration [Recovering/Resolving]
  - Decreased immune responsiveness [Not Recovered/Not Resolved]
  - Respiratory disorder [Not Recovered/Not Resolved]
  - Nausea [Not Recovered/Not Resolved]

NARRATIVE: CASE EVENT DATE: 201709
